FAERS Safety Report 6049199-4 (Version None)
Quarter: 2009Q1

REPORT INFORMATION
  Report Type: 
  Country: None (occurrence: None)
  Receive Date: 20090123
  Receipt Date: 20090114
  Transmission Date: 20090719
  Serious: Yes (Other)
  Sender: FDA-Public Use
  Company Number: FR-ASTRAZENECA-2009CG00220

PATIENT
  Age: 48 Year
  Sex: Male

DRUGS (2)
  1. PROPOFOL [Suspect]
     Route: 042
  2. SUFENTANIL [Suspect]

REACTIONS (1)
  - HYPERSENSITIVITY [None]
